FAERS Safety Report 7650890-4 (Version None)
Quarter: 2011Q3

REPORT INFORMATION
  Report Type: 
  Country: None (occurrence: None)
  Receive Date: 20110727
  Receipt Date: 20110711
  Transmission Date: 20111222
  Serious: Yes (Hospitalization)
  Sender: FDA-Public Use
  Company Number: PHHY2011DE64213

PATIENT
  Age: 71 Year
  Sex: Male

DRUGS (5)
  1. SIRDALUD (TIZANIDINE HYDROCHLORIDE) [Suspect]
     Dosage: 10 MG, QD ORAL
     Route: 048
     Dates: start: 20101111, end: 20101219
  2. VALPROATE SODIUM [Suspect]
     Dosage: 1000 MG, QD ORAL ; 500 MG, QD; ORAL
     Route: 048
     Dates: start: 20101111, end: 20101221
  3. VALPROATE SODIUM [Suspect]
     Dosage: 1000 MG, QD ORAL ; 500 MG, QD; ORAL
     Route: 048
     Dates: start: 20101222, end: 20101223
  4. SIMVASTATIN [Concomitant]
  5. FALITHROM (PHENPROCOUMON) [Concomitant]

REACTIONS (11)
  - MUSCLE RIGIDITY [None]
  - ENCEPHALOPATHY [None]
  - HYPERTONIA [None]
  - DIZZINESS [None]
  - HYPERVIGILANCE [None]
  - DISORIENTATION [None]
  - DISTURBANCE IN ATTENTION [None]
  - POSTURE ABNORMAL [None]
  - RESTLESSNESS [None]
  - DELIRIUM [None]
  - SOMNOLENCE [None]
